FAERS Safety Report 10214601 (Version 1)
Quarter: 2014Q2

REPORT INFORMATION
  Report Type: Report from Study
  Country: MW (occurrence: MW)
  Receive Date: 20140603
  Receipt Date: 20140603
  Transmission Date: 20141212
  Serious: Yes (Hospitalization)
  Sender: FDA-Public Use
  Company Number: MW-BRISTOL-MYERS SQUIBB COMPANY-20868378

PATIENT
  Age: 27 Year
  Sex: Male
  Weight: 45 kg

DRUGS (11)
  1. EFAVIRENZ TABS 600 MG [Suspect]
     Indication: TUBERCULOSIS
     Dosage: DRUG INTERRUPTED ON 17-AUG-2009
     Route: 048
     Dates: start: 20090730
  2. EFAVIRENZ TABS 600 MG [Suspect]
     Indication: HIV INFECTION
     Dosage: DRUG INTERRUPTED ON 17-AUG-2009
     Route: 048
     Dates: start: 20090730
  3. EMTRICITABINE/TENOFOVIR DISOPROXIL FUMARATE [Suspect]
     Indication: TUBERCULOSIS
     Dosage: 1 DF = 200/300 MG.DRUG INTERRUPTED ON 17-AUG-2009
     Route: 048
     Dates: start: 20090730
  4. EMTRICITABINE/TENOFOVIR DISOPROXIL FUMARATE [Suspect]
     Indication: HIV INFECTION
     Dosage: 1 DF = 200/300 MG.DRUG INTERRUPTED ON 17-AUG-2009
     Route: 048
     Dates: start: 20090730
  5. RIFAMPIN [Concomitant]
  6. ISONIAZID [Concomitant]
  7. PYRAZINAMIDE [Concomitant]
  8. ETHAMBUTOL HCL [Concomitant]
  9. TRIMETHOPRIM + SULFAMETHOXAZOLE [Concomitant]
  10. FLUCONAZOLE [Concomitant]
  11. PROMETHAZINE [Concomitant]

REACTIONS (3)
  - White blood cell count decreased [Not Recovered/Not Resolved]
  - Hepatitis [Unknown]
  - Urinary tract infection [Unknown]
